FAERS Safety Report 13078953 (Version 4)
Quarter: 2017Q4

REPORT INFORMATION
  Report Type: Report from Study
  Country: BR (occurrence: BR)
  Receive Date: 20170102
  Receipt Date: 20171114
  Transmission Date: 20180320
  Serious: Yes (Hospitalization, Other)
  Sender: FDA-Public Use
  Company Number: PHHY2016BR023951

PATIENT
  Age: 87 Year
  Sex: Female
  Weight: 70 kg

DRUGS (5)
  1. SANDOSTATIN LAR DEPOT [Suspect]
     Active Substance: OCTREOTIDE ACETATE
     Indication: NEUROENDOCRINE TUMOUR
     Dosage: 30 MG, QMO (ONCE A MONTH)
     Route: 030
     Dates: start: 201107
  2. SANDOSTATIN LAR DEPOT [Suspect]
     Active Substance: OCTREOTIDE ACETATE
     Dosage: 30 MG, EVERY 28 DAYS (GLUTEAL APPLICATION)
     Route: 030
     Dates: end: 201709
  3. BENICAR [Concomitant]
     Active Substance: OLMESARTAN MEDOXOMIL
     Indication: HYPERTENSION
     Dosage: 20 MG, QD
     Route: 048
  4. SANDOSTATIN LAR DEPOT [Suspect]
     Active Substance: OCTREOTIDE ACETATE
     Indication: HEPATIC NEOPLASM
     Dosage: 30 MG, Q2MO
     Route: 030
  5. SANDOSTATIN LAR DEPOT [Suspect]
     Active Substance: OCTREOTIDE ACETATE
     Dosage: 30 MG, Q3MO
     Route: 030

REACTIONS (29)
  - Fatigue [Recovered/Resolved]
  - Pain [Recovered/Resolved]
  - Fall [Unknown]
  - Somnolence [Unknown]
  - Fear [Unknown]
  - Weight increased [Unknown]
  - Abnormal faeces [Unknown]
  - Malignant neoplasm progression [Unknown]
  - Anxiety [Unknown]
  - Weight decreased [Unknown]
  - Therapy non-responder [Unknown]
  - Malaise [Unknown]
  - Head injury [Unknown]
  - Pain [Unknown]
  - Agitation [Unknown]
  - Inappropriate schedule of drug administration [Unknown]
  - Serum serotonin increased [Unknown]
  - Nervousness [Unknown]
  - Body height decreased [Unknown]
  - Fatigue [Unknown]
  - Dizziness [Unknown]
  - Abdominal pain [Unknown]
  - Blood pressure fluctuation [Recovered/Resolved]
  - Urinary tract infection [Recovered/Resolved]
  - Malaise [Recovered/Resolved]
  - Back pain [Unknown]
  - Pollakiuria [Recovering/Resolving]
  - Blood pressure increased [Unknown]
  - Nausea [Unknown]

NARRATIVE: CASE EVENT DATE: 201608
